FAERS Safety Report 4719366-8 (Version None)
Quarter: 2005Q3

REPORT INFORMATION
  Report Type: 
  Country: None (occurrence: None)
  Receive Date: 20050721
  Receipt Date: 20050711
  Transmission Date: 20060218
  Serious: Yes (Other)
  Sender: FDA-Public Use
  Company Number: CA-JNJFOC-20050702262

PATIENT
  Sex: Male

DRUGS (4)
  1. REMICADE [Suspect]
     Indication: RHEUMATOID ARTHRITIS
     Route: 042
  2. METHOTREXATE [Concomitant]
     Indication: RHEUMATOID ARTHRITIS
  3. DURAGESIC-100 [Concomitant]
     Indication: PAIN
  4. MORPHINE [Concomitant]
     Indication: PAIN
     Route: 048

REACTIONS (1)
  - DYSPLASTIC NAEVUS SYNDROME [None]
